FAERS Safety Report 11118629 (Version 7)
Quarter: 2016Q1

REPORT INFORMATION
  Report Type: Report from Study
  Country: US (occurrence: US)
  Receive Date: 20150518
  Receipt Date: 20160204
  Transmission Date: 20160525
  Serious: Yes (Hospitalization, Other)
  Sender: FDA-Public Use
  Company Number: US-SA-2013SA133888

PATIENT
  Age: 46 Year
  Sex: Female

DRUGS (11)
  1. AUBAGIO [Suspect]
     Active Substance: TERIFLUNOMIDE
     Indication: RELAPSING-REMITTING MULTIPLE SCLEROSIS
     Route: 048
     Dates: start: 20130712, end: 20131223
  2. TYSABRI [Concomitant]
     Active Substance: NATALIZUMAB
  3. EFFEXOR [Concomitant]
     Active Substance: VENLAFAXINE HYDROCHLORIDE
  4. AUBAGIO [Suspect]
     Active Substance: TERIFLUNOMIDE
     Indication: RELAPSING-REMITTING MULTIPLE SCLEROSIS
     Route: 048
     Dates: start: 20150311
  5. VITAMIN D [Concomitant]
     Active Substance: CHOLECALCIFEROL
  6. NEURONTIN [Concomitant]
     Active Substance: GABAPENTIN
  7. PERCOCET [Concomitant]
     Active Substance: ACETAMINOPHEN\OXYCODONE HYDROCHLORIDE
  8. AUBAGIO [Suspect]
     Active Substance: TERIFLUNOMIDE
     Indication: RELAPSING-REMITTING MULTIPLE SCLEROSIS
     Route: 048
     Dates: start: 20150501
  9. BACLOFEN. [Concomitant]
     Active Substance: BACLOFEN
  10. MACRODANTIN [Concomitant]
     Active Substance: NITROFURANTOIN
  11. CELEBREX [Concomitant]
     Active Substance: CELECOXIB

REACTIONS (45)
  - Urinary tract infection [Not Recovered/Not Resolved]
  - Face injury [Unknown]
  - Decreased appetite [Unknown]
  - Paraesthesia [Unknown]
  - Arthritis [Unknown]
  - Depression [Not Recovered/Not Resolved]
  - Visual acuity reduced [Unknown]
  - Incoherent [Unknown]
  - Eye pain [Unknown]
  - Cognitive disorder [Unknown]
  - Infection [Recovering/Resolving]
  - Malaise [Unknown]
  - Muscular weakness [Unknown]
  - Fall [Unknown]
  - Intervertebral disc protrusion [Unknown]
  - Hypersomnia [Unknown]
  - Fatigue [Unknown]
  - Malaise [Not Recovered/Not Resolved]
  - Disturbance in attention [Not Recovered/Not Resolved]
  - Emotional disorder [Not Recovered/Not Resolved]
  - Balance disorder [Not Recovered/Not Resolved]
  - Multiple sclerosis [Unknown]
  - Confusional state [Unknown]
  - Headache [Unknown]
  - Nocturia [Unknown]
  - Flank pain [Recovered/Resolved]
  - Back pain [Not Recovered/Not Resolved]
  - Pain [Unknown]
  - Vision blurred [Unknown]
  - Memory impairment [Unknown]
  - Uhthoff^s phenomenon [Unknown]
  - Drug ineffective [Unknown]
  - Optic neuritis [Unknown]
  - Unevaluable event [Unknown]
  - Asthenia [Not Recovered/Not Resolved]
  - Alopecia [Not Recovered/Not Resolved]
  - Migraine [Unknown]
  - Balance disorder [Unknown]
  - Anger [Not Recovered/Not Resolved]
  - Gait disturbance [Not Recovered/Not Resolved]
  - Neuropathy peripheral [Not Recovered/Not Resolved]
  - Hypertension [Unknown]
  - Back pain [Unknown]
  - Dysuria [Unknown]
  - Contusion [Unknown]

NARRATIVE: CASE EVENT DATE: 2013
